FAERS Safety Report 15891659 (Version 1)
Quarter: 2019Q1

REPORT INFORMATION
  Report Type: Spontaneous
  Country: FR (occurrence: FR)
  Receive Date: 20190130
  Receipt Date: 20190130
  Transmission Date: 20190417
  Serious: Yes (Other)
  Sender: FDA-Public Use
  Company Number: FR-PROVELL PHARMACEUTICALS-2061942

PATIENT
  Age: 29 Year
  Sex: Female
  Weight: 61 kg

DRUGS (1)
  1. EUTHYROX [Suspect]
     Active Substance: LEVOTHYROXINE SODIUM
     Indication: AUTOIMMUNE THYROIDITIS
     Route: 048
     Dates: start: 20180712, end: 20181024

REACTIONS (9)
  - Vision blurred [Recovering/Resolving]
  - Chest pain [Recovering/Resolving]
  - Fear [Recovering/Resolving]
  - Diffuse alopecia [Recovering/Resolving]
  - Insomnia [Recovering/Resolving]
  - Malaise [Recovering/Resolving]
  - Vertigo [Recovering/Resolving]
  - Paranoia [Recovering/Resolving]
  - Tachycardia [Recovering/Resolving]

NARRATIVE: CASE EVENT DATE: 20180712
